FAERS Safety Report 8327892-8 (Version None)
Quarter: 2012Q2

REPORT INFORMATION
  Report Type: 
  Country: None (occurrence: None)
  Receive Date: 20120502
  Receipt Date: 20120424
  Transmission Date: 20120825
  Serious: Yes (Hospitalization)
  Sender: FDA-Public Use
  Company Number: US-CELGENEUS-163-21880-12031979

PATIENT
  Sex: Female
  Weight: 90.8 kg

DRUGS (33)
  1. CALCIUM VIT D [Concomitant]
     Dosage: 1000-200MG
     Route: 048
  2. LORTAB [Concomitant]
     Indication: PAIN
     Dosage: 5-500MG
     Route: 048
  3. ASTEPRO [Concomitant]
     Dosage: 1-2 PUFFS EACH SIDE OF NOSE
     Route: 065
  4. ELOCAN [Concomitant]
     Dosage: .1 PERCENT
     Route: 065
  5. NYSTATIN-TRIAMCINOLONE [Concomitant]
     Dosage: 100000-0.1UNIT/GM%
     Route: 065
  6. LASIX [Concomitant]
     Dosage: 40 MILLIGRAM
     Route: 048
  7. K-VESCENT [Concomitant]
     Dosage: 20 MILLIEQUIVALENTS
     Route: 065
  8. REVLIMID [Suspect]
     Dosage: 10 MILLIGRAM
     Route: 048
     Dates: start: 20101220
  9. MIRALAX [Concomitant]
     Dosage: 1-2 TABLESPOONS
     Route: 048
  10. QUESTRAN LIGHT [Concomitant]
     Dosage: 1PACKET
     Route: 065
  11. CORTISPORIN [Concomitant]
     Dosage: 3-4GTTS RIGHT EAR
     Route: 065
  12. ZOFRAN [Concomitant]
     Indication: NAUSEA
     Dosage: 4 MILLIGRAM
     Route: 048
  13. REVLIMID [Suspect]
     Indication: MULTIPLE MYELOMA
     Dosage: 10 MILLIGRAM
     Route: 048
     Dates: start: 20101023
  14. DIFLUCAN [Concomitant]
     Dosage: 50 MILLIGRAM
     Route: 048
  15. LORAZEPAM [Concomitant]
     Dosage: 1 MILLIGRAM
     Route: 065
  16. NEURONTIN [Concomitant]
     Dosage: 300 MILLIGRAM
     Route: 065
  17. DILAUDID [Concomitant]
     Indication: PAIN
     Dosage: 2 MILLIGRAM
     Route: 065
  18. ACCUPRIL [Concomitant]
     Dosage: 10 MILLIGRAM
     Route: 048
  19. TYLENOL (CAPLET) [Concomitant]
     Dosage: 500 MILLIGRAM
     Route: 065
  20. FLONASE [Concomitant]
     Dosage: 2 SPRAYS
     Route: 045
  21. AMBIEN [Concomitant]
     Dosage: 5 MILLIGRAM
     Route: 065
  22. AMBIEN [Concomitant]
     Dosage: 10 MILLIGRAM
     Route: 065
  23. DERMOTIC [Concomitant]
     Dosage: .01 PERCENT
     Route: 065
  24. ATIVAN [Concomitant]
     Dosage: 1 MILLIGRAM
     Route: 048
  25. COUMADIN [Concomitant]
     Dosage: 5 MILLIGRAM
     Route: 065
  26. GLUCOTROL [Concomitant]
     Dosage: 5 MILLIGRAM
     Route: 048
  27. DECADRON [Concomitant]
     Dosage: 8 MILLIGRAM
     Route: 065
  28. ADVAIR DISKUS 100/50 [Concomitant]
     Dosage: 100-50MCG
     Route: 055
  29. LAC-HYDRIN [Concomitant]
     Dosage: 12 PERCENT
     Route: 065
  30. KETOCONAZOLE [Concomitant]
     Dosage: 2 PERCENT
     Route: 065
  31. NORVASC [Concomitant]
     Dosage: 5 MILLIGRAM
     Route: 065
  32. NEXIUM [Concomitant]
     Dosage: 1/2
     Route: 048
  33. REGLAN [Concomitant]
     Dosage: 5 MILLIGRAM
     Route: 048

REACTIONS (4)
  - NYSTAGMUS [None]
  - ABDOMINAL DISCOMFORT [None]
  - DIZZINESS [None]
  - DEHYDRATION [None]
